FAERS Safety Report 10090164 (Version 1)
Quarter: 2014Q2

REPORT INFORMATION
  Report Type: Spontaneous
  Country: US (occurrence: US)
  Receive Date: 20140421
  Receipt Date: 20140421
  Transmission Date: 20141212
  Serious: Yes (Other)
  Sender: FDA-Public Use
  Company Number: US-SHIRE-US201401345

PATIENT
  Age: 66 Year
  Sex: Female

DRUGS (2)
  1. LIALDA [Suspect]
     Indication: COLITIS ULCERATIVE
     Dosage: 4.8 G (FOUR 1.2 G TABLETS), 1X/DAY:QD
     Route: 048
     Dates: start: 2013
  2. DIOVAN [Concomitant]
     Indication: HYPERTENSION
     Dosage: 320 MG, 1X/DAY:QD
     Route: 048

REACTIONS (3)
  - Pulmonary oedema [Recovered/Resolved]
  - Renal mass [Not Recovered/Not Resolved]
  - Peripheral swelling [Not Recovered/Not Resolved]
